FAERS Safety Report 7218487-8 (Version None)
Quarter: 2011Q1

REPORT INFORMATION
  Report Type: 
  Country: None (occurrence: None)
  Receive Date: 20110110
  Receipt Date: 20110104
  Transmission Date: 20110831
  Serious: Yes (Disabling, Other)
  Sender: FDA-Public Use
  Company Number: US-GENENTECH-310181

PATIENT
  Sex: Male
  Weight: 79.819 kg

DRUGS (2)
  1. RITUXAN [Suspect]
     Indication: MANTLE CELL LYMPHOMA
     Dosage: 375 MG/M2, UNK
     Route: 042
     Dates: start: 20100921
  2. TREANDA [Suspect]
     Indication: MANTLE CELL LYMPHOMA
     Dosage: 120 MG/M2, UNK
     Dates: start: 20100921

REACTIONS (3)
  - EMBOLISM ARTERIAL [None]
  - TUNNEL VISION [None]
  - VISUAL ACUITY REDUCED [None]
